FAERS Safety Report 8185107 (Version 5)
Quarter: 2012Q4

REPORT INFORMATION
  Report Type: 
  Country: US (occurrence: US)
  Receive Date: 20111018
  Receipt Date: 20121012
  Transmission Date: 20130627
  Serious: Yes (Other)
  Sender: FDA-Public Use
  Company Number: US-ASTRAZENECA-2010SE50189

PATIENT
  Age: 76 Year
  Sex: Female

DRUGS (2)
  1. SYMBICORT PMDI [Suspect]
     Dosage: 160/4.5 MCG DAILY
     Route: 055
     Dates: start: 2008
  2. SPIRIVA [Concomitant]

REACTIONS (7)
  - Lung disorder [Unknown]
  - Lung disorder [Unknown]
  - Dyspnoea [Unknown]
  - Malaise [Unknown]
  - Nasopharyngitis [Recovering/Resolving]
  - Diarrhoea [Unknown]
  - Adverse event [Unknown]
